FAERS Safety Report 4558660-0 (Version None)
Quarter: 2005Q1

REPORT INFORMATION
  Report Type: 
  Country: None (occurrence: None)
  Receive Date: 20050121
  Receipt Date: 20050121
  Transmission Date: 20050727
  Serious: Yes (Hospitalization)
  Sender: FDA-Public Use
  Company Number: None

PATIENT
  Age: 40 Year
  Sex: Female
  Weight: 82.3 kg

DRUGS (3)
  1. GLEEVEC [Suspect]
     Indication: NON-SMALL CELL LUNG CANCER
     Dosage: 300 MG PO QD
     Route: 048
     Dates: start: 20050112
  2. ATIVAN [Concomitant]
  3. PHENERGAN [Concomitant]

REACTIONS (2)
  - OEDEMA PERIPHERAL [None]
  - SWELLING FACE [None]
